FAERS Safety Report 5385349-0 (Version None)
Quarter: 2007Q3

REPORT INFORMATION
  Report Type: 
  Country: None (occurrence: None)
  Receive Date: 20070712
  Receipt Date: 20070703
  Transmission Date: 20080115
  Serious: Yes (Death)
  Sender: FDA-Public Use
  Company Number: AT-PURDUE-DEU_2007_0003291

PATIENT
  Age: 19 Year
  Sex: Male

DRUGS (11)
  1. MORPHINE [Suspect]
     Indication: DRUG DEPENDENCE
     Route: 048
  2. DEANXIT [Suspect]
     Indication: DRUG DEPENDENCE
     Route: 048
  3. DIHYDROCODEINE BITARTRATE INJ [Suspect]
     Route: 048
  4. TRUXAL [Suspect]
  5. VENLAFAXINE HCL [Suspect]
  6. VALIUM [Suspect]
  7. OXAZEPAM [Suspect]
  8. FLUNITRAZEPAM [Suspect]
  9. AMITRIPTYLINE HCL [Suspect]
  10. TOLVON [Suspect]
  11. CANNABIS [Concomitant]

REACTIONS (3)
  - BRAIN OEDEMA [None]
  - MULTIPLE DRUG OVERDOSE [None]
  - PULMONARY OEDEMA [None]
